FAERS Safety Report 4644540-9 (Version None)
Quarter: 2005Q2

REPORT INFORMATION
  Report Type: 
  Country: None (occurrence: None)
  Receive Date: 20050321
  Receipt Date: 20041201
  Transmission Date: 20051028
  Serious: No
  Sender: FDA-Public Use
  Company Number: 04P-163-0281802-00

PATIENT
  Age: 73 Year
  Sex: Male
  Weight: 86.1834 kg

DRUGS (7)
  1. HUMIRA [Suspect]
     Indication: RHEUMATOID ARTHRITIS
     Dosage: 40 MG, 1 IN 2 WK, SUBCUTANEOUS
     Route: 058
     Dates: start: 20040601
  2. LEFLUNOMIDE [Concomitant]
  3. CELECOXIB [Concomitant]
  4. PARACETAMOL [Concomitant]
  5. PREDNISONE [Concomitant]
  6. BENAZEPRIL HYDROCHLORIDE [Concomitant]
  7. METOPROLOL SUCCINATE [Concomitant]

REACTIONS (2)
  - PRURITUS [None]
  - URTICARIA [None]
